FAERS Safety Report 10642470 (Version 1)
Quarter: 2014Q4

REPORT INFORMATION
  Report Type: Spontaneous
  Country: US (occurrence: None)
  Receive Date: 20141208
  Receipt Date: 20141208
  Transmission Date: 20150529
  Serious: Yes (Hospitalization)
  Sender: FDA-Public Use
  Company Number: RAP-0257-2014

PATIENT
  Age: 16 Year
  Sex: Male
  Weight: 54.43 kg

DRUGS (1)
  1. PROCYSBI DELAYED-RELEASE [Suspect]
     Active Substance: CYSTEAMINE BITARTRATE
     Indication: CYSTINOSIS
     Dosage: 1350 MG (675 MG, 2 IN 1 D), ORAL
     Route: 048
     Dates: start: 201207

REACTIONS (3)
  - Nausea [None]
  - Extra dose administered [None]
  - Vomiting [None]

NARRATIVE: CASE EVENT DATE: 201409
